FAERS Safety Report 24437120 (Version 1)
Quarter: 2024Q4

REPORT INFORMATION
  Report Type: Spontaneous
  Country: US (occurrence: US)
  Receive Date: 20241015
  Receipt Date: 20241015
  Transmission Date: 20250114
  Serious: No
  Sender: ROCHE
  Company Number: US-ROCHE-10000106107

PATIENT
  Age: 54 Year
  Sex: Female

DRUGS (1)
  1. RITUXAN [Suspect]
     Active Substance: RITUXIMAB
     Indication: Plasma cell myeloma
     Dosage: AT WEEKS 0 AND 2
     Route: 042
     Dates: start: 20241001

REACTIONS (3)
  - Off label use [Unknown]
  - Throat irritation [Unknown]
  - Chills [Unknown]

NARRATIVE: CASE EVENT DATE: 20241001
